FAERS Safety Report 20678320 (Version 2)
Quarter: 2022Q2

REPORT INFORMATION
  Report Type: Spontaneous
  Country: CN (occurrence: CN)
  Receive Date: 20220406
  Receipt Date: 20220419
  Transmission Date: 20220721
  Serious: Yes (Life-Threatening, Other)
  Sender: FDA-Public Use
  Company Number: CN-Accord-259503

PATIENT
  Age: 56 Year
  Sex: Female

DRUGS (4)
  1. PACLITAXEL [Suspect]
     Active Substance: PACLITAXEL
     Indication: HER2 positive gastric cancer
     Dosage: PTX IVGTT 50 MG/M2 ON DAYS 1 AND 8
     Route: 042
     Dates: start: 20210329, end: 20210615
  2. TS-1 [Suspect]
     Active Substance: GIMERACIL\OTERACIL\TEGAFUR
     Indication: HER2 positive gastric cancer
     Dosage: S-1 PO, 40 MG, FOR 14 DAYS, Q3WKS
     Route: 048
     Dates: start: 20210329, end: 20210615
  3. APATINIB [Concomitant]
     Active Substance: APATINIB
     Indication: HER2 positive gastric cancer
     Dosage: PO 0.5 G, QD, FOR 14 DAYS Q3WKS
     Route: 048
     Dates: start: 20210321, end: 20210615
  4. CAMRELIZUMAB [Concomitant]
     Active Substance: CAMRELIZUMAB
     Indication: Adenocarcinoma gastric
     Dosage: IVGTT 200 MG Q3WKS
     Route: 041
     Dates: start: 20210315, end: 20210615

REACTIONS (7)
  - Myelosuppression [Recovering/Resolving]
  - Gastrointestinal haemorrhage [Recovered/Resolved]
  - Bacterial infection [Recovered/Resolved]
  - Fungal infection [Recovered/Resolved]
  - Mouth ulceration [Recovering/Resolving]
  - Rash [Recovering/Resolving]
  - Urinary incontinence [Recovered/Resolved]

NARRATIVE: CASE EVENT DATE: 20210601
